FAERS Safety Report 8523325-7 (Version None)
Quarter: 2012Q3

REPORT INFORMATION
  Report Type: 
  Country: None (occurrence: None)
  Receive Date: 20120709
  Receipt Date: 20120627
  Transmission Date: 20120928
  Serious: Yes (Hospitalization)
  Sender: FDA-Public Use
  Company Number: CA-008808

PATIENT
  Age: 80 Year
  Sex: Male

DRUGS (22)
  1. FIRMAGON [Suspect]
     Indication: PROSTATE CANCER
     Dosage: (80 MG 1X/MONTH SUBCUTANEOUS)
     Route: 058
  2. TAMSULOSIN HCL [Concomitant]
  3. THEO-DUR [Concomitant]
  4. LOPRESSOR [Concomitant]
  5. DETROL [Concomitant]
  6. NORVASC [Concomitant]
  7. LANOXIN [Concomitant]
  8. ALTACE [Concomitant]
  9. CLOXACILLIN SODIUM [Concomitant]
  10. LIPITOR [Concomitant]
  11. EZETIMIBE [Concomitant]
  12. FLUTICASONE PROPIONATE [Concomitant]
  13. PANTOPRAZOLE [Concomitant]
  14. POTASSIUM CHLORIDE [Concomitant]
  15. SPIRIVA [Concomitant]
  16. ASPIRIN [Concomitant]
  17. FUROSEMIDE [Concomitant]
  18. LEVOTHYROXINE SODIUM [Concomitant]
  19. SPIRONOLACTONE [Concomitant]
  20. COUMADIN [Concomitant]
  21. CALCIFEROL [Concomitant]
  22. IRON [Concomitant]

REACTIONS (1)
  - GASTROINTESTINAL HAEMORRHAGE [None]
